FAERS Safety Report 9275276 (Version 5)
Quarter: 2013Q4

REPORT INFORMATION
  Report Type: Spontaneous
  Country: US (occurrence: None)
  Receive Date: 20130430
  Receipt Date: 20131010
  Transmission Date: 20140711
  Serious: Yes (Hospitalization, Other)
  Sender: FDA-Public Use
  Company Number: ACO_31145_2012

PATIENT
  Age: 60 Year
  Sex: Female
  Weight: 59.4 kg

DRUGS (9)
  1. AMPYRA [Suspect]
     Indication: MULTIPLE SCLEROSIS
     Route: 048
     Dates: start: 201005, end: 201207
  2. BACLOFEN (BACLOFEN) [Concomitant]
  3. CALCIUM WITH VITAMIN D /00944201/ (CALCIUM CARBONATE, COLECALCIFEROL) [Concomitant]
  4. COPAXONE [Concomitant]
  5. FORTEO (TERIPARATIDE) [Concomitant]
  6. PAXIL (PAROXETINE HYDROCHLORIDE) [Concomitant]
  7. VITAMIN B COMPLEX (VITAMIN B COMPLEX) [Concomitant]
  8. CIPROFLOXACIN (CIPROFLOXACIN LACTATE) [Concomitant]
  9. VITAMIN D (ERGOCALCIFEROL) [Concomitant]

REACTIONS (12)
  - Pruritus [None]
  - Malaise [None]
  - Nausea [None]
  - Urinary tract infection [None]
  - Faeces pale [None]
  - Cholecystectomy [None]
  - Chromaturia [None]
  - Diarrhoea [None]
  - Pollakiuria [None]
  - Cholelithiasis [None]
  - Bile duct stone [None]
  - Abasia [None]
